FAERS Safety Report 9561995 (Version 2)
Quarter: 2013Q4

REPORT INFORMATION
  Report Type: Spontaneous
  Country: US (occurrence: US)
  Receive Date: 20130927
  Receipt Date: 20131204
  Transmission Date: 20140711
  Serious: No
  Sender: FDA-Public Use
  Company Number: US-BIOGENIDEC-2013BI065028

PATIENT
  Age: 40 Year
  Sex: Female

DRUGS (1)
  1. TECFIDERA [Suspect]
     Indication: MULTIPLE SCLEROSIS
     Route: 048

REACTIONS (4)
  - Erythema [Unknown]
  - Burning sensation [Unknown]
  - Abdominal pain [Unknown]
  - Pain in extremity [Unknown]
